FAERS Safety Report 8377117-2 (Version None)
Quarter: 2012Q2

REPORT INFORMATION
  Report Type: 
  Country: None (occurrence: None)
  Receive Date: 20120522
  Receipt Date: 20100501
  Transmission Date: 20120825
  Serious: Yes (Other)
  Sender: FDA-Public Use
  Company Number: IE-ROCHE-1070392

PATIENT

DRUGS (1)
  1. AVASTIN [Suspect]
     Indication: LUNG ADENOCARCINOMA

REACTIONS (1)
  - PULMONARY EMBOLISM [None]
